FAERS Safety Report 8219826-1 (Version None)
Quarter: 2012Q1

REPORT INFORMATION
  Report Type: 
  Country: None (occurrence: None)
  Receive Date: 20120319
  Receipt Date: 20120312
  Transmission Date: 20120608
  Serious: Yes (Death)
  Sender: FDA-Public Use
  Company Number: PT-GILEAD-2012-0052111

PATIENT
  Age: 32 Year
  Sex: Male

DRUGS (1)
  1. VISTIDE [Suspect]
     Indication: PROGRESSIVE MULTIFOCAL LEUKOENCEPHALOPATHY
     Dosage: UNK

REACTIONS (3)
  - LOCKED-IN SYNDROME [None]
  - BLINDNESS CORTICAL [None]
  - PROGRESSIVE MULTIFOCAL LEUKOENCEPHALOPATHY [None]
